FAERS Safety Report 10570299 (Version 1)
Quarter: 2014Q4

REPORT INFORMATION
  Report Type: Spontaneous
  Country: US (occurrence: None)
  Receive Date: 20141106
  Receipt Date: 20141106
  Transmission Date: 20150529
  Serious: Yes (Other)
  Sender: FDA-Public Use
  Company Number: None

PATIENT
  Age: 60 Year
  Sex: Female
  Weight: 90.72 kg

DRUGS (1)
  1. PROLIA [Suspect]
     Active Substance: DENOSUMAB
     Indication: OSTEOPOROSIS
     Dosage: 1 EVERY 6 MONTHS, INTO THE MUSCLE
     Route: 030

REACTIONS (4)
  - Rash pruritic [None]
  - Arthralgia [None]
  - Rash [None]
  - Joint swelling [None]

NARRATIVE: CASE EVENT DATE: 20140805
